FAERS Safety Report 4546089-0 (Version None)
Quarter: 2005Q1

REPORT INFORMATION
  Report Type: 
  Country: None (occurrence: None)
  Receive Date: 20050106
  Receipt Date: 20041229
  Transmission Date: 20050727
  Serious: Yes (Death, Life-Threatening, Other)
  Sender: FDA-Public Use
  Company Number: FR-BRISTOL-MYERS SQUIBB COMPANY-12812186

PATIENT
  Age: 68 Year
  Sex: Female

DRUGS (3)
  1. ENDOXAN [Suspect]
     Indication: BREAST CANCER
     Route: 042
     Dates: start: 19960101, end: 19960101
  2. 5-FU [Suspect]
     Indication: BREAST CANCER
     Route: 042
     Dates: start: 19960101, end: 19960101
  3. NOVANTRONE [Suspect]
     Indication: BREAST CANCER
     Route: 042
     Dates: start: 19960101, end: 19960101

REACTIONS (6)
  - ACINETOBACTER INFECTION [None]
  - ACUTE MYELOID LEUKAEMIA [None]
  - ACUTE RESPIRATORY DISTRESS SYNDROME [None]
  - AGRANULOCYTOSIS [None]
  - RESPIRATORY TRACT INFECTION [None]
  - TREATMENT RELATED SECONDARY MALIGNANCY [None]
